FAERS Safety Report 8849832 (Version 53)
Quarter: 2017Q3

REPORT INFORMATION
  Report Type: Report from Study
  Country: CA (occurrence: CA)
  Receive Date: 20121019
  Receipt Date: 20170814
  Transmission Date: 20171128
  Serious: Yes (Hospitalization, Other)
  Sender: FDA-Public Use
  Company Number: CA-ROCHE-1146476

PATIENT
  Age: 59 Year
  Sex: Female
  Weight: 51 kg

DRUGS (15)
  1. ACTEMRA [Suspect]
     Active Substance: TOCILIZUMAB
     Route: 042
     Dates: start: 20141029
  2. TYLENOL WITH CODEINE [Concomitant]
     Active Substance: ACETAMINOPHEN\CODEINE PHOSPHATE
     Dosage: WHEN ABSOLUTELY NEEDED
     Route: 065
  3. OXYCOCET [Concomitant]
     Active Substance: ACETAMINOPHEN\OXYCODONE HYDROCHLORIDE
  4. JAMP-K 20 [Concomitant]
  5. ASA [Concomitant]
     Active Substance: ASPIRIN
  6. AVALIDE [Concomitant]
     Active Substance: HYDROCHLOROTHIAZIDE\IRBESARTAN
     Indication: BLOOD PRESSURE MEASUREMENT
     Dosage: WHEN ABSOLUTELY NEEDED
     Route: 065
  7. PERCOCET [Concomitant]
     Active Substance: ACETAMINOPHEN\OXYCODONE HYDROCHLORIDE
     Route: 065
  8. NIFEDIPINE. [Concomitant]
     Active Substance: NIFEDIPINE
     Dosage: WHEN ABSOLUTELY NEEDED
     Route: 065
  9. SPIRONOLACTONE. [Concomitant]
     Active Substance: SPIRONOLACTONE
  10. GABAPENTIN. [Concomitant]
     Active Substance: GABAPENTIN
  11. ASPIRIN. [Concomitant]
     Active Substance: ASPIRIN
  12. ACTEMRA [Suspect]
     Active Substance: TOCILIZUMAB
     Indication: RHEUMATOID ARTHRITIS
     Route: 042
     Dates: start: 20111212
  13. MORPHINE [Concomitant]
     Active Substance: MORPHINE
     Dosage: WHEN ABSOLUTELY NEEDED
     Route: 065
  14. FOLIC ACID. [Concomitant]
     Active Substance: FOLIC ACID
  15. TECTA [Concomitant]
     Active Substance: PANTOPRAZOLE MAGNESIUM

REACTIONS (61)
  - Rhinorrhoea [Unknown]
  - Nasopharyngitis [Not Recovered/Not Resolved]
  - Oedema peripheral [Not Recovered/Not Resolved]
  - Oxygen saturation decreased [Unknown]
  - Blood pressure increased [Unknown]
  - Animal bite [Recovered/Resolved]
  - Diarrhoea [Recovered/Resolved]
  - Arthropathy [Unknown]
  - Fracture [Not Recovered/Not Resolved]
  - Arthropathy [Not Recovered/Not Resolved]
  - Peripheral coldness [Not Recovered/Not Resolved]
  - Ear haemorrhage [Recovered/Resolved]
  - Hypersensitivity [Unknown]
  - Skin ulcer [Recovering/Resolving]
  - Dehydration [Unknown]
  - Oxygen saturation decreased [Unknown]
  - Bone disorder [Unknown]
  - Feeling abnormal [Unknown]
  - Lower limb fracture [Unknown]
  - Syncope [Recovered/Resolved]
  - Tooth disorder [Unknown]
  - Arthralgia [Unknown]
  - Rheumatoid arthritis [Not Recovered/Not Resolved]
  - Abdominal pain [Recovered/Resolved]
  - Insomnia [Unknown]
  - Weight increased [Unknown]
  - Blood pressure increased [Unknown]
  - Radial nerve compression [Not Recovered/Not Resolved]
  - Joint injury [Unknown]
  - Hip fracture [Recovered/Resolved]
  - Confusional state [Not Recovered/Not Resolved]
  - Ear injury [Recovered/Resolved]
  - Sinus congestion [Recovered/Resolved]
  - Stress [Not Recovered/Not Resolved]
  - Insomnia [Unknown]
  - Heart rate increased [Unknown]
  - Tooth abscess [Not Recovered/Not Resolved]
  - Neuralgia [Not Recovered/Not Resolved]
  - Epistaxis [Unknown]
  - Electrolyte imbalance [Not Recovered/Not Resolved]
  - Withdrawal syndrome [Unknown]
  - Hypothyroidism [Unknown]
  - Paraesthesia [Unknown]
  - Wound infection [Recovered/Resolved]
  - Contusion [Unknown]
  - Arthropod sting [Unknown]
  - Infusion related reaction [Unknown]
  - Hiatus hernia [Not Recovered/Not Resolved]
  - Hypoaesthesia [Unknown]
  - Nervous system disorder [Unknown]
  - Heart rate increased [Unknown]
  - Blood pressure decreased [Not Recovered/Not Resolved]
  - Wound [Unknown]
  - Aphonia [Unknown]
  - Muscle strain [Not Recovered/Not Resolved]
  - Weight decreased [Unknown]
  - Dizziness [Recovered/Resolved]
  - Eye discharge [Not Recovered/Not Resolved]
  - Arthropathy [Unknown]
  - Fall [Unknown]
  - Sinusitis [Recovered/Resolved]

NARRATIVE: CASE EVENT DATE: 2012
